FAERS Safety Report 10794073 (Version 1)
Quarter: 2015Q1

REPORT INFORMATION
  Report Type: Report from Study
  Country: US (occurrence: US)
  Receive Date: 20150213
  Receipt Date: 20150213
  Transmission Date: 20150721
  Serious: Yes (Hospitalization)
  Sender: FDA-Public Use
  Company Number: US-ABBVIE-15P-163-1343010-00

PATIENT
  Age: 62 Year
  Sex: Female

DRUGS (1)
  1. VIEKIRA PAK [Suspect]
     Active Substance: DASABUVIR\OMBITASVIR\PARITAPREVIR\RITONAVIR
     Indication: HEPATITIS C
     Dosage: 2 PINK TABLETS, 1 BEIGE TABLET EVERY MORNING; 1 BEIGE TABLET EVERY EVENING
     Route: 048
     Dates: start: 20150112

REACTIONS (7)
  - Ammonia increased [Recovering/Resolving]
  - Confusional state [Unknown]
  - Drug interaction [Recovering/Resolving]
  - Haematemesis [Unknown]
  - Amnesia [Unknown]
  - Nausea [Unknown]
  - Mental status changes [Unknown]

NARRATIVE: CASE EVENT DATE: 20150126
